FAERS Safety Report 9120982 (Version 2)
Quarter: 2013Q2

REPORT INFORMATION
  Report Type: Spontaneous
  Country: US (occurrence: US)
  Receive Date: 20130226
  Receipt Date: 20130410
  Transmission Date: 20140414
  Serious: Yes (Life-Threatening, Other)
  Sender: FDA-Public Use
  Company Number: US-GLAXOSMITHKLINE-A1013510A

PATIENT
  Age: 47 Year
  Sex: Female
  Weight: 68.6 kg

DRUGS (7)
  1. BENLYSTA [Suspect]
     Indication: SYSTEMIC LUPUS ERYTHEMATOSUS
     Dosage: 640MG SINGLE DOSE
     Route: 042
     Dates: start: 20130215, end: 20130215
  2. METHOTREXATE [Concomitant]
     Indication: PSORIASIS
  3. CYMBALTA [Concomitant]
  4. TIZANIDINE [Concomitant]
     Indication: NECK PAIN
  5. LISINOPRIL [Concomitant]
  6. CARVEDILOL [Concomitant]
  7. HYDROCODONE [Concomitant]
     Indication: NECK PAIN

REACTIONS (10)
  - Convulsion [Recovered/Resolved]
  - Hypersensitivity [Unknown]
  - Dyspnoea [Unknown]
  - Malaise [Unknown]
  - Bronchospasm [Unknown]
  - Hypotension [Unknown]
  - Dizziness [Unknown]
  - Syncope [Unknown]
  - Urinary incontinence [Unknown]
  - Faecal incontinence [Unknown]
